FAERS Safety Report 7324796-4 (Version None)
Quarter: 2011Q1

REPORT INFORMATION
  Report Type: 
  Country: None (occurrence: None)
  Receive Date: 20110301
  Receipt Date: 20110202
  Transmission Date: 20110831
  Serious: No
  Sender: FDA-Public Use
  Company Number: US-B.I. PHARMACEUTICALS,INC./RIDGEFIELD-2011-BP-03238BP

PATIENT
  Sex: Female

DRUGS (9)
  1. LASIX [Concomitant]
  2. LISINOPRIL [Concomitant]
  3. METOPROLOL [Concomitant]
  4. POTASSIUM CHLORIDE [Concomitant]
  5. PRADAXA [Suspect]
     Indication: ATRIAL FIBRILLATION
     Dosage: 300 MG
     Route: 048
     Dates: start: 20110201
  6. CARDIZEM [Concomitant]
  7. FERROUS SULFATE TAB [Concomitant]
  8. SYNTHROID [Concomitant]
  9. TRAMADOL [Concomitant]

REACTIONS (5)
  - LETHARGY [None]
  - EAR PAIN [None]
  - NAUSEA [None]
  - MUSCULOSKELETAL DISCOMFORT [None]
  - VOMITING [None]
